FAERS Safety Report 7973519-4 (Version None)
Quarter: 2011Q4

REPORT INFORMATION
  Report Type: 
  Country: None (occurrence: None)
  Receive Date: 20111209
  Receipt Date: 20111126
  Transmission Date: 20120403
  Serious: Yes (Other)
  Sender: FDA-Public Use
  Company Number: JP-2011-12005

PATIENT

DRUGS (15)
  1. WARFARIN POTASSIUM (WARFARIN POTASSIUM) [Concomitant]
  2. LASIX [Concomitant]
  3. LIVALO (PLAVASTATIN CALCIUM) [Concomitant]
  4. AMIODARONE HYDROCHLORIDE (AMIODARONE HYDROCODONE) [Concomitant]
  5. PIMOBENDAN (PIMODENDAN) [Concomitant]
  6. NITOROL (LASOSORBIDE DINITRATE) [Concomitant]
  7. SAMSCA [Suspect]
     Indication: FLUID RETENTION
     Dosage: 15 MG MILLIGRAM(S), QAM, ORAL
     Route: 048
     Dates: start: 20111105, end: 20111106
  8. ALLOPURINOL [Concomitant]
  9. PERINDOPRIL ERBUMINE [Concomitant]
  10. DOPAMINE HYDROCHLORIDE [Suspect]
     Indication: CARDIAC FAILURE
     Dosage: 360 MG MILLIGRAM(S), DAILY DOSE, INTRAVENOUS
     Route: 042
     Dates: start: 20111109, end: 20111109
  11. FAMOTIDEINE (FAMOTIDINE) [Concomitant]
  12. ARTIST (CARVEDILOL) [Concomitant]
  13. HEPARIN SODIUM [Concomitant]
  14. DOBUTREX [Suspect]
     Indication: CARDIAC FAILURE
     Dosage: 360 MG MILLIGRAM(S), DAILY DOSE, IV DRIP
     Route: 041
     Dates: start: 20111105, end: 20111109
  15. PRIMPERAN INJ [Concomitant]

REACTIONS (2)
  - HYPERNATRAEMIA [None]
  - THIRST [None]
